FAERS Safety Report 25962940 (Version 1)
Quarter: 2025Q4

REPORT INFORMATION
  Report Type: Spontaneous
  Country: US (occurrence: None)
  Receive Date: 20251026
  Receipt Date: 20251026
  Transmission Date: 20260117
  Serious: No
  Sender: FDA-CTU
  Company Number: None

PATIENT
  Age: 58 Year
  Sex: Female
  Weight: 55.8 kg

DRUGS (1)
  1. RECLAST [Suspect]
     Active Substance: ZOLEDRONIC ACID
     Indication: Product used for unknown indication
     Dosage: OTHER QUANTITY : 1 INJECTION(S);?OTHER FREQUENCY : FIRST ANNUAL DOSE;?
     Route: 042
     Dates: start: 20251023, end: 20251023

REACTIONS (17)
  - Chills [None]
  - Pyrexia [None]
  - Tachycardia [None]
  - Nausea [None]
  - Vomiting [None]
  - Dysgeusia [None]
  - Decreased appetite [None]
  - Taste disorder [None]
  - Fatigue [None]
  - Dyspnoea [None]
  - Hypersomnia [None]
  - Feeling abnormal [None]
  - Headache [None]
  - Mental impairment [None]
  - Confusional state [None]
  - Dizziness [None]
  - Infusion related reaction [None]

NARRATIVE: CASE EVENT DATE: 20251023
